FAERS Safety Report 6519284-9 (Version None)
Quarter: 2009Q4

REPORT INFORMATION
  Report Type: 
  Country: None (occurrence: None)
  Receive Date: 20091228
  Receipt Date: 20091217
  Transmission Date: 20100525
  Serious: Yes (Other)
  Sender: FDA-Public Use
  Company Number: US-JNJFOC-20091205649

PATIENT
  Sex: Female
  Weight: 49.44 kg

DRUGS (9)
  1. REMICADE [Suspect]
     Route: 042
  2. REMICADE [Suspect]
     Indication: RHEUMATOID ARTHRITIS
     Dosage: DOSE REPORTED AS ^400 CC^
     Route: 042
  3. CELEBREX [Concomitant]
     Indication: PAIN
     Dosage: DURATION= 2-3 YEARS
  4. PREMPRO [Concomitant]
     Dosage: DOSE= 0/3/1.5 MG ONCE A DAY FOR 6-7 YEARS
  5. ENALAPRIL [Concomitant]
     Dosage: DURATION= 2-3 YEARS
  6. AMLODIPINE [Concomitant]
     Indication: HYPERTENSION
     Dosage: DURATION= 4-5 YEARS
  7. METHOTREXATE [Concomitant]
     Indication: RHEUMATOID ARTHRITIS
  8. LEUCOVORIN CALCIUM [Concomitant]
     Indication: OSTEOPOROSIS
  9. TOPAMAX [Concomitant]
     Indication: MIGRAINE
     Dosage: 3-4 TIMES/DAY FOR 2-4 YEARS

REACTIONS (9)
  - ARTHRALGIA [None]
  - BACK PAIN [None]
  - DIZZINESS [None]
  - FALL [None]
  - MIGRAINE [None]
  - OSTEOPOROSIS [None]
  - RED BLOOD CELL COUNT DECREASED [None]
  - WEIGHT DECREASED [None]
  - WHITE BLOOD CELL COUNT DECREASED [None]
